FAERS Safety Report 16554808 (Version 7)
Quarter: 2019Q4

REPORT INFORMATION
  Report Type: Report from Study
  Country: US (occurrence: US)
  Receive Date: 20190710
  Receipt Date: 20191205
  Transmission Date: 20200122
  Serious: Yes (Other)
  Sender: FDA-Public Use
  Company Number: US-SA-2017SA066132

PATIENT
  Age: 55 Year
  Sex: Female

DRUGS (2)
  1. ALEMTUZUMAB [Suspect]
     Active Substance: ALEMTUZUMAB
     Indication: MULTIPLE SCLEROSIS
     Dosage: 12 MG, QD
     Route: 041
     Dates: start: 20170327, end: 20170331
  2. NITROFURANTOIN. [Concomitant]
     Active Substance: NITROFURANTOIN
     Dosage: UNK UNK,UNK
     Route: 065

REACTIONS (34)
  - Cough [Not Recovered/Not Resolved]
  - Multiple sclerosis relapse [Recovered/Resolved]
  - CD4 lymphocytes decreased [Not Recovered/Not Resolved]
  - Incontinence [Not Recovered/Not Resolved]
  - Viral infection [Not Recovered/Not Resolved]
  - Productive cough [Not Recovered/Not Resolved]
  - Pneumonia [Unknown]
  - Wound haemorrhage [Recovered/Resolved]
  - Eye pain [Not Recovered/Not Resolved]
  - Steroid therapy [Recovered/Resolved]
  - Rubella [Unknown]
  - Influenza [Unknown]
  - Hypoaesthesia [Recovered/Resolved]
  - Fatigue [Recovering/Resolving]
  - Oropharyngeal pain [Not Recovered/Not Resolved]
  - Malignant melanoma [Recovered/Resolved]
  - Gastroenteritis viral [Recovered/Resolved]
  - Vomiting [Recovered/Resolved]
  - Animal bite [Recovered/Resolved]
  - Wound secretion [Recovered/Resolved]
  - Skin lesion [Unknown]
  - Asthenia [Recovered/Resolved]
  - Abdominal pain [Not Recovered/Not Resolved]
  - Drug hypersensitivity [Unknown]
  - Pyrexia [Not Recovered/Not Resolved]
  - Gait disturbance [Recovered/Resolved]
  - Lymphocyte count decreased [Not Recovered/Not Resolved]
  - Malaise [Recovered/Resolved]
  - Condition aggravated [Not Recovered/Not Resolved]
  - Dysuria [Recovered/Resolved]
  - Neuropathy peripheral [Not Recovered/Not Resolved]
  - Contusion [Not Recovered/Not Resolved]
  - Feeling abnormal [Recovered/Resolved]
  - Cystitis [Recovered/Resolved]

NARRATIVE: CASE EVENT DATE: 2017
